FAERS Safety Report 7663557 (Version 2)
Quarter: 2014Q1

REPORT INFORMATION
  Report Type: Report from Study
  Country: JP (occurrence: JP)
  Receive Date: 20101110
  Receipt Date: 20140212
  Transmission Date: 20141002
  Serious: Yes (Other)
  Sender: FDA-Public Use
  Company Number: PHHY2010JP72614

PATIENT
  Age: 64 Year
  Sex: Female

DRUGS (8)
  1. AMN107 [Suspect]
     Indication: CHRONIC MYELOID LEUKAEMIA
     Dosage: 400 MG, DAY
     Route: 048
     Dates: start: 20100202, end: 20100301
  2. AMN107 [Suspect]
     Dosage: 400 MG, DAY
     Route: 048
     Dates: start: 20100508
  3. MUCOSTA [Concomitant]
     Dosage: 300 MG
     Route: 048
     Dates: start: 20100202
  4. THYRADIN S [Concomitant]
     Indication: HYPOTHYROIDISM
     Dosage: 12.5 UG
     Route: 048
     Dates: start: 20100312
  5. THYRADIN S [Concomitant]
     Dosage: 25 UG
     Route: 048
  6. THYRADIN S [Concomitant]
     Dosage: 100 UG
     Route: 048
  7. THYRADIN S [Concomitant]
     Dosage: 50 UG
     Route: 048
  8. THYRADIN S [Concomitant]
     Dosage: 75 UG
     Route: 048

REACTIONS (7)
  - Electrocardiogram QT prolonged [Recovered/Resolved]
  - Palpitations [Unknown]
  - White blood cell count increased [Unknown]
  - Platelet count increased [Unknown]
  - Alanine aminotransferase increased [Unknown]
  - Blood glucose increased [Unknown]
  - Blood lactate dehydrogenase increased [Unknown]
